FAERS Safety Report 13455736 (Version 1)
Quarter: 2017Q2

REPORT INFORMATION
  Report Type: Spontaneous
  Country: US (occurrence: US)
  Receive Date: 20170419
  Receipt Date: 20170419
  Transmission Date: 20170830
  Serious: No
  Sender: FDA-Public Use
  Company Number: None

PATIENT

DRUGS (2)
  1. NPH INSULIN [Suspect]
     Active Substance: INSULIN BEEF
  2. REGULAR INSULIN [Suspect]
     Active Substance: INSULIN NOS

REACTIONS (1)
  - Wrong drug administered [None]
